FAERS Safety Report 9708587 (Version 1)
Quarter: 2013Q4

REPORT INFORMATION
  Report Type: Spontaneous
  Country: US (occurrence: US)
  Receive Date: 20131125
  Receipt Date: 20131125
  Transmission Date: 20140711
  Serious: Yes (Other)
  Sender: FDA-Public Use
  Company Number: PHEH2013US024339

PATIENT
  Sex: Female

DRUGS (13)
  1. GILENYA [Suspect]
     Dosage: 0.5 MG, QD
     Route: 048
     Dates: start: 20120101, end: 20131113
  2. METFORMIN [Concomitant]
  3. DIAZEPAM [Concomitant]
  4. SYNTHROID [Concomitant]
  5. ESTRADIOL [Concomitant]
  6. PLAQUENIL [Concomitant]
  7. VITAMIN D [Concomitant]
  8. VITAMIN E [Concomitant]
  9. VITAMIN B12 [Concomitant]
  10. CINNAMON [Concomitant]
  11. CIMETIDINE [Concomitant]
  12. ANTIBIOTIC [Concomitant]
  13. STEROID [Concomitant]

REACTIONS (1)
  - Uterine cancer [Unknown]
